FAERS Safety Report 15899744 (Version 2)
Quarter: 2019Q1

REPORT INFORMATION
  Report Type: Spontaneous
  Country: US (occurrence: US)
  Receive Date: 20190201
  Receipt Date: 20190207
  Transmission Date: 20190417
  Serious: No
  Sender: FDA-Public Use
  Company Number: US-PFIZER INC-2019041263

PATIENT
  Age: 60 Year
  Sex: Female
  Weight: 79.38 kg

DRUGS (9)
  1. EFFEXOR XR [Suspect]
     Active Substance: VENLAFAXINE HYDROCHLORIDE
     Indication: DEPRESSION
     Dosage: 150 MG, 1X/DAY
     Route: 048
     Dates: start: 20190124
  2. PROTONIX [OMEPRAZOLE] [Concomitant]
     Active Substance: OMEPRAZOLE
     Indication: GASTROOESOPHAGEAL REFLUX DISEASE
     Dosage: 40 MG, 1X/DAY (ONCE DAILY)
     Route: 048
  3. VENLAFAXINE [Suspect]
     Active Substance: VENLAFAXINE HYDROCHLORIDE
     Dosage: UNK
  4. TRAMADOL. [Concomitant]
     Active Substance: TRAMADOL
     Indication: PAIN
     Dosage: 300 MG, 1X/DAY (1 TABLET TAKEN BY MOUTH DURING THE DAY, 2 TABLETS TAKEN BY MOUTH AT NIGHT DAILY)
     Route: 048
  5. OLMESARTAN MEDOXOMIL. [Concomitant]
     Active Substance: OLMESARTAN MEDOXOMIL
     Indication: CARDIAC DISORDER
     Dosage: 20 MG, DAILY
     Route: 048
     Dates: start: 2018
  6. ASPIRIN [ACETYLSALICYLIC ACID] [Concomitant]
     Active Substance: ASPIRIN
     Indication: CARDIAC DISORDER
     Dosage: 81 MG, 1X/DAY (ONCE DAILY)
     Route: 048
     Dates: start: 2014
  7. MERCAPTOPURINE. [Concomitant]
     Active Substance: MERCAPTOPURINE
     Indication: CROHN^S DISEASE
     Dosage: 50 MG, 1X/DAY (TABLET TAKEN BY MOUTH AT NIGHT)
     Route: 048
  8. CIMZIA [Concomitant]
     Active Substance: CERTOLIZUMAB PEGOL
     Indication: CROHN^S DISEASE
     Dosage: 200 MG, UNK (1 SUBCUTANEOUS INJECTION EVERY OTHER WEEK)
     Route: 058
     Dates: start: 2014
  9. COUMADIN [Concomitant]
     Active Substance: WARFARIN SODIUM
     Dosage: 10 MG, 1X/DAY (ONCE DAILY)
     Route: 048
     Dates: start: 2012

REACTIONS (1)
  - Drug ineffective [Not Recovered/Not Resolved]

NARRATIVE: CASE EVENT DATE: 20190124
